FAERS Safety Report 25372148 (Version 2)
Quarter: 2025Q2

REPORT INFORMATION
  Report Type: Spontaneous
  Country: US (occurrence: US)
  Receive Date: 20250529
  Receipt Date: 20250626
  Transmission Date: 20250717
  Serious: Yes (Hospitalization)
  Sender: HETERO
  Company Number: US-HETERO-HET2025US02790

PATIENT
  Age: 13 Year
  Sex: Male
  Weight: 50 kg

DRUGS (1)
  1. DEXTROMETHORPHAN HYDROBROMIDE\QUINIDINE SULFATE [Suspect]
     Active Substance: DEXTROMETHORPHAN HYDROBROMIDE\QUINIDINE SULFATE
     Indication: Respiratory symptom
     Route: 065

REACTIONS (2)
  - Anaphylactic reaction [Unknown]
  - Off label use [Unknown]
